FAERS Safety Report 8958643 (Version 5)
Quarter: 2013Q3

REPORT INFORMATION
  Report Type: Spontaneous
  Country: US (occurrence: None)
  Receive Date: 20130102
  Receipt Date: 20130827
  Transmission Date: 20140515
  Serious: Yes (Other)
  Sender: FDA-Public Use
  Company Number: 2012P1065496

PATIENT
  Age: 20 Year
  Sex: Female

DRUGS (3)
  1. MYORISAN [Suspect]
     Dates: start: 20121029, end: 20121116
  2. AMNESTEEM [Suspect]
     Dates: start: 20121029, end: 20121116
  3. BIRTH CONTROL PILLS [Concomitant]

REACTIONS (5)
  - Pregnancy on oral contraceptive [None]
  - Maternal exposure during pregnancy [None]
  - Drug dose omission [None]
  - Nausea [None]
  - Vomiting [None]
